FAERS Safety Report 15804950 (Version 2)
Quarter: 2019Q2

REPORT INFORMATION
  Report Type: Spontaneous
  Country: US (occurrence: US)
  Receive Date: 20190110
  Receipt Date: 20190410
  Transmission Date: 20190711
  Serious: No
  Sender: FDA-Public Use
  Company Number: US-AUROBINDO-AUR-APU-2018-054272

PATIENT
  Age: 66 Year
  Sex: Male
  Weight: 72.56 kg

DRUGS (3)
  1. LORAZEPAM TABLETS USP 1 MG [Suspect]
     Active Substance: LORAZEPAM
     Indication: SLEEP APNOEA SYNDROME
  2. LORAZEPAM TABLETS USP 1 MG [Suspect]
     Active Substance: LORAZEPAM
     Indication: SOMNOLENCE
     Dosage: 4 TABLETS AT NIGHT PER DAY
     Route: 065
  3. ASPIRIN                            /00002701/ [Concomitant]
     Active Substance: ASPIRIN
     Indication: PRODUCT USED FOR UNKNOWN INDICATION

REACTIONS (6)
  - Therapeutic product effect incomplete [Unknown]
  - Impaired driving ability [Unknown]
  - Headache [Unknown]
  - Abdominal discomfort [Unknown]
  - Product substitution issue [Unknown]
  - Dizziness [Unknown]

NARRATIVE: CASE EVENT DATE: 20181031
